FAERS Safety Report 10523803 (Version 1)
Quarter: 2014Q4

REPORT INFORMATION
  Report Type: Report from Study
  Country: CA (occurrence: CA)
  Receive Date: 20141017
  Receipt Date: 20141017
  Transmission Date: 20150528
  Serious: Yes (Other)
  Sender: FDA-Public Use
  Company Number: CA-AMGEN-CANSL2014078365

PATIENT
  Age: 71 Year
  Sex: Female

DRUGS (8)
  1. PROLIA [Suspect]
     Active Substance: DENOSUMAB
     Indication: OSTEOPOROSIS POSTMENOPAUSAL
     Dosage: 20 MG, UNK
     Route: 065
     Dates: start: 20140509
  2. FUROSEMIDE. [Concomitant]
     Active Substance: FUROSEMIDE
  3. VITAMIN B12 [Concomitant]
     Active Substance: CYANOCOBALAMIN
  4. CALCIUM [Concomitant]
     Active Substance: CALCIUM
  5. VITAMIN D                          /00107901/ [Concomitant]
     Active Substance: ERGOCALCIFEROL
  6. OXYGEN. [Concomitant]
     Active Substance: OXYGEN
  7. SPIRONOLACTONE. [Concomitant]
     Active Substance: SPIRONOLACTONE
  8. SYNTHROID [Concomitant]
     Active Substance: LEVOTHYROXINE SODIUM

REACTIONS (6)
  - Localised infection [Unknown]
  - Pyrexia [Unknown]
  - Local swelling [Unknown]
  - Pain [Recovered/Resolved]
  - Chills [Unknown]
  - Skin discolouration [Unknown]

NARRATIVE: CASE EVENT DATE: 20140522
